FAERS Safety Report 10761990 (Version 3)
Quarter: 2015Q1

REPORT INFORMATION
  Report Type: Spontaneous
  Country: HK (occurrence: HK)
  Receive Date: 20150204
  Receipt Date: 20150330
  Transmission Date: 20150721
  Serious: Yes (Hospitalization, Other)
  Sender: FDA-Public Use
  Company Number: HK-009507513-1501HKG011763

PATIENT

DRUGS (3)
  1. DIPROSPAN [Suspect]
     Active Substance: BETAMETHASONE DIPROPIONATE\BETAMETHASONE SODIUM PHOSPHATE
     Dosage: 0.8 CC
     Route: 030
     Dates: start: 20150119, end: 20150119
  2. DIPROSPAN [Suspect]
     Active Substance: BETAMETHASONE DIPROPIONATE\BETAMETHASONE SODIUM PHOSPHATE
     Indication: ECZEMA
     Dosage: INTRAMUSUCLAR AT BUTTOCK
     Route: 030
     Dates: start: 20140916, end: 20140916
  3. CLOXACILLIN [Concomitant]
     Active Substance: CLOXACILLIN
     Indication: ECZEMA
     Dosage: 250 MG, UNK

REACTIONS (2)
  - Shock [Recovered/Resolved]
  - Drug hypersensitivity [Unknown]

NARRATIVE: CASE EVENT DATE: 20140916
